FAERS Safety Report 10408374 (Version 3)
Quarter: 2014Q3

REPORT INFORMATION
  Report Type: Spontaneous
  Country: IT (occurrence: IT)
  Receive Date: 20140826
  Receipt Date: 20140901
  Transmission Date: 20150326
  Serious: Yes (Hospitalization)
  Sender: FDA-Public Use
  Company Number: IT-009507513-1408ITA013709

PATIENT
  Age: 58 Year
  Sex: Male

DRUGS (7)
  1. KEPPRA [Suspect]
     Active Substance: LEVETIRACETAM
     Indication: INTENTIONAL SELF-INJURY
     Dosage: 500 MG TABLET, 10 POSOLOGICAL UNITS, TOTAL
     Route: 048
     Dates: start: 20130921, end: 20130921
  2. FINASTERIDE. [Suspect]
     Active Substance: FINASTERIDE
     Indication: INTENTIONAL SELF-INJURY
     Dosage: 8 POSOLOGICAL UNITS, TOTAL
     Route: 048
     Dates: start: 20130921, end: 20130921
  3. FRISIUM [Suspect]
     Active Substance: CLOBAZAM
     Indication: INTENTIONAL SELF-INJURY
     Dosage: 10 MG CAPSULE, 10 POSOLOGICAL UNITS
     Route: 048
     Dates: start: 20130921, end: 20130921
  4. BISOPROLOL FUMARATE. [Suspect]
     Active Substance: BISOPROLOL FUMARATE
     Indication: INTENTIONAL SELF-INJURY
     Dosage: 3 TABLETS OF 1.25 MG TABLET (ALSO REPORTED AS 4.5 MG)
     Route: 048
     Dates: start: 20130921, end: 20130921
  5. LISINOPRIL. [Suspect]
     Active Substance: LISINOPRIL
     Indication: INTENTIONAL SELF-INJURY
     Dosage: 13 TABLETS OF 5 MG TABLETS, 65 MG
     Route: 048
     Dates: start: 20130921, end: 20130921
  6. AGGRENOX [Suspect]
     Active Substance: ASPIRIN\DIPYRIDAMOLE
     Indication: INTENTIONAL SELF-INJURY
     Dosage: 200 MG+25 MG CAPSULE, 60 POSOLOGICAL UNITS, TOTAL
     Route: 048
     Dates: start: 20130921, end: 20130921
  7. ZARELIS [Suspect]
     Active Substance: VENLAFAXINE HYDROCHLORIDE
     Indication: INTENTIONAL SELF-INJURY
     Dosage: 150 MG TABLET, 10 POSOLOGICAL UNITS, TOTAL
     Route: 048
     Dates: start: 20130921, end: 20130921

REACTIONS (3)
  - Vomiting [Recovering/Resolving]
  - Loss of consciousness [Recovering/Resolving]
  - Drug abuse [Recovering/Resolving]

NARRATIVE: CASE EVENT DATE: 20130921
